FAERS Safety Report 14448258 (Version 2)
Quarter: 2018Q1

REPORT INFORMATION
  Report Type: Spontaneous
  Country: DE (occurrence: DE)
  Receive Date: 20180126
  Receipt Date: 20180225
  Transmission Date: 20180509
  Serious: Yes (Other)
  Sender: FDA-Public Use
  Company Number: DE-NOVOPROD-576188

PATIENT
  Age: 52 Year
  Sex: Male
  Weight: 86 kg

DRUGS (1)
  1. FIASP [Suspect]
     Active Substance: INSULIN ASPART
     Indication: TYPE 1 DIABETES MELLITUS
     Dosage: 20 IU BASAL/24 HOURS,1 IU/BE (BREAD UNIT) - 1.2 IU/BE
     Route: 058
     Dates: start: 201709, end: 201801

REACTIONS (7)
  - Injection site erythema [Not Recovered/Not Resolved]
  - Malabsorption from injection site [Not Recovered/Not Resolved]
  - Blood glucose increased [Recovered/Resolved]
  - Wrong technique in product usage process [Unknown]
  - Injection site induration [Not Recovered/Not Resolved]
  - Drug effect incomplete [Unknown]
  - Diabetic ketoacidosis [Recovered/Resolved]

NARRATIVE: CASE EVENT DATE: 201709
